FAERS Safety Report 5219335-8 (Version None)
Quarter: 2007Q1

REPORT INFORMATION
  Report Type: 
  Country: None (occurrence: None)
  Receive Date: 20061201
  Receipt Date: 20060728
  Transmission Date: 20070707
  Serious: No
  Sender: FDA-Public Use
  Company Number: 2006PV018433

PATIENT
  Age: 66 Year
  Sex: Male

DRUGS (6)
  1. BYETTA [Suspect]
     Indication: DRUG USE FOR UNKNOWN INDICATION
  2. AMARYL [Concomitant]
  3. ACTOS [Concomitant]
  4. METFORMIN HCL [Concomitant]
  5. PROZAC [Concomitant]
  6. PRAVACHOL [Concomitant]

REACTIONS (1)
  - ABDOMINAL DISCOMFORT [None]
